FAERS Safety Report 4883650-8 (Version None)
Quarter: 2006Q1

REPORT INFORMATION
  Report Type: 
  Country: None (occurrence: None)
  Receive Date: 20060118
  Receipt Date: 20060111
  Transmission Date: 20060701
  Serious: Yes (Life-Threatening)
  Sender: FDA-Public Use
  Company Number: PHRM2006FR00490

PATIENT
  Age: 54 Year
  Sex: Female

DRUGS (2)
  1. FEMARA [Suspect]
     Indication: BREAST CANCER FEMALE
     Dosage: 2.5 MG, QD
     Route: 048
     Dates: start: 20000615
  2. RADIOTHERAPY [Suspect]
     Indication: BREAST CANCER FEMALE
     Dosage: 2 COURSES
     Dates: start: 20030101, end: 20030101

REACTIONS (1)
  - ACUTE MYELOID LEUKAEMIA [None]
